FAERS Safety Report 22245827 (Version 1)
Quarter: 2023Q2

REPORT INFORMATION
  Report Type: Report from Study
  Country: US (occurrence: US)
  Receive Date: 20230424
  Receipt Date: 20230424
  Transmission Date: 20230721
  Serious: Yes (Other)
  Sender: FDA-Public Use
  Company Number: US-MYLANLABS-202200640952

PATIENT
  Sex: Female

DRUGS (2)
  1. LYRICA [Suspect]
     Active Substance: PREGABALIN
     Indication: Product used for unknown indication
     Dosage: 300 MILLIGRAM, TID, (300 MG, 3X/DAY)
     Route: 048
  2. LYRICA [Suspect]
     Active Substance: PREGABALIN
     Dosage: 1 DOSAGE FORM, TID
     Route: 048

REACTIONS (6)
  - Drug dependence [Unknown]
  - Injury [Unknown]
  - Headache [Unknown]
  - Insomnia [Unknown]
  - Pain [Unknown]
  - Prescribed overdose [Unknown]
